FAERS Safety Report 8767714 (Version 2)
Quarter: 2012Q4

REPORT INFORMATION
  Report Type: 
  Country: US (occurrence: US)
  Receive Date: 20120904
  Receipt Date: 20121204
  Transmission Date: 20130627
  Serious: No
  Sender: FDA-Public Use
  Company Number: US-AMGEN-USASP2012052529

PATIENT
  Age: 53 Year
  Sex: Female

DRUGS (2)
  1. ENBREL [Suspect]
     Indication: ANKYLOSING SPONDYLITIS
     Dosage: 25 mg, q2wk
     Route: 058
     Dates: start: 2005
  2. ENBREL [Suspect]
     Indication: FIBROMYALGIA

REACTIONS (2)
  - Ankylosing spondylitis [Not Recovered/Not Resolved]
  - Pyrexia [Recovered/Resolved]
